FAERS Safety Report 12944271 (Version 1)
Quarter: 2016Q4

REPORT INFORMATION
  Report Type: Spontaneous
  Country: US (occurrence: US)
  Receive Date: 20161115
  Receipt Date: 20161115
  Transmission Date: 20170207
  Serious: No
  Sender: FDA-Public Use
  Company Number: US-009507513-1610USA010200

PATIENT
  Age: 20 Year
  Sex: Female
  Weight: 73.02 kg

DRUGS (1)
  1. NEXPLANON [Suspect]
     Active Substance: ETONOGESTREL
     Indication: PRODUCT USED FOR UNKNOWN INDICATION
     Dosage: UNK
     Route: 059
     Dates: start: 20151021

REACTIONS (5)
  - Device breakage [Unknown]
  - Pain in extremity [Unknown]
  - Vaginal haemorrhage [Unknown]
  - Device kink [Unknown]
  - Limb discomfort [Unknown]
